FAERS Safety Report 24645183 (Version 1)
Quarter: 2024Q4

REPORT INFORMATION
  Report Type: Spontaneous
  Country: US (occurrence: US)
  Receive Date: 20241121
  Receipt Date: 20241121
  Transmission Date: 20250115
  Serious: No
  Sender: PAREXEL
  Company Number: US-COHERUS BIOSCIENCES, Inc.-2024-COH-US000084

PATIENT

DRUGS (13)
  1. UDENYCA [Suspect]
     Active Substance: PEGFILGRASTIM-CBQV
     Indication: Prophylaxis
     Dosage: 6 MG/0.6ML, EVERY 21 DAYS
     Route: 058
     Dates: start: 20240209, end: 20240209
  2. UDENYCA [Suspect]
     Active Substance: PEGFILGRASTIM-CBQV
     Dosage: 6 MG, EVERY 21 DAYS
     Route: 058
     Dates: start: 20240209
  3. AMLODIPINE [Concomitant]
     Active Substance: AMLODIPINE BESYLATE
     Dosage: UNK
  4. ATORVASTATIN [Concomitant]
     Active Substance: ATORVASTATIN
     Dosage: UNK
  5. FLOMAX [Concomitant]
     Active Substance: TAMSULOSIN HYDROCHLORIDE
     Dosage: UNK
  6. MEGESTROL ACETATE [Concomitant]
     Active Substance: MEGESTROL ACETATE
     Dosage: UNK
  7. SINGULAIR [Concomitant]
     Active Substance: MONTELUKAST SODIUM
     Dosage: UNK
  8. PREDNISONE [Concomitant]
     Active Substance: PREDNISONE
     Dosage: UNK
  9. ISOSORBIDE MONONITRATE [Concomitant]
     Active Substance: ISOSORBIDE MONONITRATE
     Dosage: UNK
  10. LOSARTAN [Concomitant]
     Active Substance: LOSARTAN
     Dosage: UNK
  11. ZOFRAN [Concomitant]
     Active Substance: ONDANSETRON HYDROCHLORIDE
     Dosage: UNK, PRN
  12. TYLENOL [Concomitant]
     Active Substance: ACETAMINOPHEN
     Dosage: UNK, PRN
  13. PROVENTIL [Concomitant]
     Active Substance: ALBUTEROL
     Dosage: UNK, PRN

REACTIONS (3)
  - Accidental exposure to product [Recovered/Resolved]
  - Product quality issue [Recovered/Resolved]
  - Device malfunction [Unknown]

NARRATIVE: CASE EVENT DATE: 20240208
